FAERS Safety Report 24587895 (Version 1)
Quarter: 2024Q4

REPORT INFORMATION
  Report Type: Report from Study
  Country: CN (occurrence: CN)
  Receive Date: 20241107
  Receipt Date: 20241107
  Transmission Date: 20250114
  Serious: Yes (Hospitalization)
  Sender: RANBAXY
  Company Number: CN-SUN PHARMACEUTICAL INDUSTRIES LTD-2024R1-472064

PATIENT
  Age: 87 Year
  Sex: Female
  Weight: 55.9 kg

DRUGS (13)
  1. SONIDEGIB [Suspect]
     Active Substance: SONIDEGIB
     Indication: Basal cell carcinoma
     Dosage: 200 MILLIGRAM, QD
     Route: 048
     Dates: start: 20240702
  2. SONIDEGIB [Suspect]
     Active Substance: SONIDEGIB
     Dosage: 200 MILLIGRAM, EVERY OTHER DAY
     Route: 048
     Dates: start: 20240926, end: 20240928
  3. SONIDEGIB [Suspect]
     Active Substance: SONIDEGIB
     Dosage: 200 MILLIGRAM, QD
     Route: 048
     Dates: start: 20240929
  4. ASPIRIN [Concomitant]
     Active Substance: ASPIRIN
     Indication: Prophylaxis
     Dosage: UNK, DAILY
     Route: 048
     Dates: start: 2010
  5. CEFDINIR [Concomitant]
     Active Substance: CEFDINIR
     Indication: Urinary tract infection
     Dosage: UNK, TID (2 TABLETS/TIME)
     Route: 048
     Dates: start: 20240618, end: 20240629
  6. Clindamycin metronidazole [Concomitant]
     Indication: Prophylaxis
     Dosage: UNK, TID
     Route: 061
     Dates: start: 20240515
  7. FLUNARIZINE HYDROCHLORIDE [Concomitant]
     Active Substance: FLUNARIZINE HYDROCHLORIDE
     Indication: Vertigo
     Dosage: UNK, DAILY
     Route: 048
     Dates: start: 2010
  8. FOSFOMYCIN TROMETHAMINE [Concomitant]
     Active Substance: FOSFOMYCIN TROMETHAMINE
     Indication: Urinary tract infection
     Dosage: 1 VIAL (3G)/TIME, EVERY OTHER DAY
     Route: 061
     Dates: start: 20240618, end: 20240629
  9. Fu fang li xue ping an ben die ding [Concomitant]
     Indication: Hypertension
     Dosage: UNK, DAILY
     Route: 048
     Dates: start: 2010
  10. MUPIROCIN [Concomitant]
     Active Substance: MUPIROCIN
     Indication: Prophylaxis
     Dosage: UNK, TID
     Route: 061
     Dates: start: 20240515
  11. NITROFURANTOIN [Concomitant]
     Active Substance: NITROFURANTOIN
     Indication: Urinary tract infection
     Dosage: 50 MILLIGRAM, TID
     Route: 048
     Dates: start: 20240705, end: 20240711
  12. NORFLOXACIN [Concomitant]
     Active Substance: NORFLOXACIN
     Indication: Diarrhoea
     Dosage: UNK, BID (4 CAPSULES/TIME)
     Route: 048
     Dates: start: 20240625, end: 20240626
  13. YIN HUA MI YAN LING PIAN [Concomitant]
     Indication: Urinary tract infection
     Dosage: UNK, TID (4 TABLETS/TIME)
     Route: 048
     Dates: start: 20240618, end: 20240629

REACTIONS (1)
  - Vertigo [Recovering/Resolving]

NARRATIVE: CASE EVENT DATE: 20240924
